FAERS Safety Report 18690286 (Version 1)
Quarter: 2020Q4

REPORT INFORMATION
  Report Type: Spontaneous
  Country: SE (occurrence: SE)
  Receive Date: 20201231
  Receipt Date: 20201231
  Transmission Date: 20210114
  Serious: Yes (Other)
  Sender: FDA-Public Use
  Company Number: SE-TEVA-2020-SE-1863946

PATIENT
  Age: 64 Year
  Sex: Male
  Weight: 81 kg

DRUGS (1)
  1. ANTABUS [Suspect]
     Active Substance: DISULFIRAM
     Dates: start: 202007, end: 202011

REACTIONS (6)
  - Cardiac failure [Recovered/Resolved]
  - Weight increased [Recovered/Resolved]
  - Headache [Recovered/Resolved]
  - Peripheral swelling [Recovered/Resolved]
  - Blood pressure increased [Recovered/Resolved]
  - Dyspnoea [Recovered/Resolved]

NARRATIVE: CASE EVENT DATE: 202008
